FAERS Safety Report 10179379 (Version 1)
Quarter: 2014Q2

REPORT INFORMATION
  Report Type: Spontaneous
  Country: US (occurrence: None)
  Receive Date: 20140515
  Receipt Date: 20140515
  Transmission Date: 20141212
  Serious: Yes (Death)
  Sender: FDA-Public Use
  Company Number: UTC-048528

PATIENT
  Age: 49 Year
  Sex: Male

DRUGS (4)
  1. TYVASO [Suspect]
     Indication: PULMONARY ARTERIAL HYPERTENSION
     Route: 055
     Dates: start: 20111223
  2. REVATIO(SILDENAFIL CITRATE) [Concomitant]
  3. WARFARIN(WARFARIN) [Concomitant]
  4. TRACLEER(BOSENTAN) [Concomitant]

REACTIONS (1)
  - Death [None]
